FAERS Safety Report 5340046-2 (Version None)
Quarter: 2007Q2

REPORT INFORMATION
  Report Type: 
  Country: None (occurrence: None)
  Receive Date: 20070531
  Receipt Date: 20070525
  Transmission Date: 20071010
  Serious: Yes (Hospitalization)
  Sender: FDA-Public Use
  Company Number: JP-ASTRAZENECA-2007SE02710

PATIENT
  Sex: Male

DRUGS (5)
  1. BLOPRESS TABLETS 8 [Suspect]
     Route: 048
  2. MUCOSTA [Concomitant]
     Route: 048
  3. PARIET [Concomitant]
     Route: 048
  4. TICLOPIDINE HCL [Concomitant]
     Route: 048
  5. AMLODIN [Concomitant]
     Route: 048

REACTIONS (1)
  - RHABDOMYOLYSIS [None]
